FAERS Safety Report 7676263-6 (Version None)
Quarter: 2011Q3

REPORT INFORMATION
  Report Type: 
  Country: None (occurrence: None)
  Receive Date: 20110805
  Receipt Date: 20110722
  Transmission Date: 20111222
  Serious: No
  Sender: FDA-Public Use
  Company Number: SPI201100205

PATIENT
  Age: 51 Year
  Sex: Female
  Weight: 65.3 kg

DRUGS (13)
  1. ATIVAN [Concomitant]
  2. AMLODIPINE (AMLODIPINE MALEATE) [Concomitant]
  3. ELAVIL [Concomitant]
  4. SIMVASTATIN [Concomitant]
  5. AMITIZA [Suspect]
     Indication: CONSTIPATION
     Dosage: 8 MCG, BID, ORAL 24 MCG, BID, ORAL 8 MCG, BID, ORAL
     Route: 048
     Dates: start: 20110711, end: 20110728
  6. AMITIZA [Suspect]
     Indication: IRRITABLE BOWEL SYNDROME
     Dosage: 8 MCG, BID, ORAL 24 MCG, BID, ORAL 8 MCG, BID, ORAL
     Route: 048
     Dates: start: 20110711, end: 20110728
  7. AMITIZA [Suspect]
     Indication: CONSTIPATION
     Dosage: 8 MCG, BID, ORAL 24 MCG, BID, ORAL 8 MCG, BID, ORAL
     Route: 048
     Dates: start: 20110728
  8. AMITIZA [Suspect]
     Indication: IRRITABLE BOWEL SYNDROME
     Dosage: 8 MCG, BID, ORAL 24 MCG, BID, ORAL 8 MCG, BID, ORAL
     Route: 048
     Dates: start: 20110728
  9. AMITIZA [Suspect]
     Indication: CONSTIPATION
     Dosage: 8 MCG, BID, ORAL 24 MCG, BID, ORAL 8 MCG, BID, ORAL
     Route: 048
     Dates: start: 20110419, end: 20110711
  10. AMITIZA [Suspect]
     Indication: IRRITABLE BOWEL SYNDROME
     Dosage: 8 MCG, BID, ORAL 24 MCG, BID, ORAL 8 MCG, BID, ORAL
     Route: 048
     Dates: start: 20110419, end: 20110711
  11. PREMARIN [Concomitant]
  12. PROZAC [Concomitant]
  13. OMEPRAZOLE [Concomitant]

REACTIONS (4)
  - PALPITATIONS [None]
  - IRRITABLE BOWEL SYNDROME [None]
  - DYSPNOEA [None]
  - HEADACHE [None]
